FAERS Safety Report 25157176 (Version 4)
Quarter: 2025Q3

REPORT INFORMATION
  Report Type: Spontaneous
  Country: US (occurrence: US)
  Receive Date: 20250403
  Receipt Date: 20250711
  Transmission Date: 20251020
  Serious: No
  Sender: PFIZER
  Company Number: US-PFIZER INC-202500059090

PATIENT
  Age: 12 Year
  Sex: Male

DRUGS (2)
  1. CIBINQO [Suspect]
     Active Substance: ABROCITINIB
     Indication: Dermatitis atopic
     Dosage: 100 MG, DAILY
     Route: 048
  2. CIBINQO [Suspect]
     Active Substance: ABROCITINIB

REACTIONS (6)
  - Epistaxis [Recovered/Resolved]
  - Influenza [Unknown]
  - Nasopharyngitis [Recovered/Resolved]
  - Condition aggravated [Unknown]
  - Illness [Unknown]
  - Neurodermatitis [Unknown]
